FAERS Safety Report 21454858 (Version 1)
Quarter: 2022Q4

REPORT INFORMATION
  Report Type: Spontaneous
  Country: FR (occurrence: FR)
  Receive Date: 20221014
  Receipt Date: 20221014
  Transmission Date: 20230112
  Serious: Yes (Other)
  Sender: FDA-Public Use
  Company Number: FR-GILEAD-2022-0600780

PATIENT
  Age: 46 Year
  Sex: Female

DRUGS (7)
  1. BIKTARVY [Suspect]
     Active Substance: BICTEGRAVIR SODIUM\EMTRICITABINE\TENOFOVIR ALAFENAMIDE FUMARATE
     Indication: HIV infection
     Dosage: UNK
     Route: 065
     Dates: start: 20201222
  2. TINZAPARIN [Concomitant]
     Active Substance: TINZAPARIN
  3. SULFAMETHOXAZOLE\TRIMETHOPRIM [Concomitant]
     Active Substance: SULFAMETHOXAZOLE\TRIMETHOPRIM
  4. SULFAMETHOXAZOLE [Concomitant]
     Active Substance: SULFAMETHOXAZOLE
  5. OMEPRAZOLE [Concomitant]
     Active Substance: OMEPRAZOLE
  6. IBUPROFEN [Concomitant]
     Active Substance: IBUPROFEN
  7. COVID-19 VACCINE [Concomitant]
     Dosage: UNK
     Dates: start: 20220405

REACTIONS (18)
  - Epilepsy [Unknown]
  - Pulmonary embolism [Unknown]
  - Subcutaneous abscess [Unknown]
  - Lymphangitis [Recovered/Resolved]
  - Neuromyopathy [Unknown]
  - Blood HIV RNA [Unknown]
  - Genotype drug resistance test positive [Unknown]
  - Diarrhoea infectious [Recovered/Resolved]
  - Pyrexia [Unknown]
  - Furuncle [Unknown]
  - Bronchitis chronic [Unknown]
  - Oropharyngeal candidiasis [Unknown]
  - Diarrhoea [Unknown]
  - Superficial vein thrombosis [Recovered/Resolved]
  - Phlebitis [Recovered/Resolved]
  - Unevaluable event [Unknown]
  - Myalgia [Unknown]
  - COVID-19 [Recovered/Resolved]

NARRATIVE: CASE EVENT DATE: 20210414
